FAERS Safety Report 5341642-9 (Version None)
Quarter: 2007Q2

REPORT INFORMATION
  Report Type: 
  Country: None (occurrence: None)
  Receive Date: 20070530
  Receipt Date: 20070516
  Transmission Date: 20071010
  Serious: No
  Sender: FDA-Public Use
  Company Number: 263887

PATIENT
  Age: 43 Year
  Sex: Female
  Weight: 79 kg

DRUGS (1)
  1. NOVOMIX 30 FLEXPEN (INSULIN ASPART) SUSPENSION FOR INJECTION, 100U/ML [Suspect]
     Indication: DRUG USE FOR UNKNOWN INDICATION
     Dosage: SUBCUTANEOUS
     Route: 058
     Dates: start: 20060915

REACTIONS (3)
  - CAESAREAN SECTION [None]
  - DRUG EXPOSURE DURING PREGNANCY [None]
  - PREGNANCY [None]
